FAERS Safety Report 4799034-7 (Version None)
Quarter: 2005Q4

REPORT INFORMATION
  Report Type: 
  Country: None (occurrence: None)
  Receive Date: 20051014
  Receipt Date: 20051004
  Transmission Date: 20060501
  Serious: Yes (Hospitalization, Other)
  Sender: FDA-Public Use
  Company Number: JP-MERCK-0510USA05779

PATIENT
  Age: 32 Year
  Sex: Male

DRUGS (4)
  1. TIMOPTIC [Suspect]
     Route: 047
  2. LATANOPROST [Suspect]
     Route: 065
  3. CARBACHOL [Suspect]
     Route: 065
  4. ACETAZOLAMIDE [Suspect]
     Route: 048

REACTIONS (2)
  - DRUG INEFFECTIVE [None]
  - SURGICAL PROCEDURE REPEATED [None]
